FAERS Safety Report 10779837 (Version 1)
Quarter: 2015Q1

REPORT INFORMATION
  Report Type: Spontaneous
  Country: US (occurrence: None)
  Receive Date: 20150206
  Receipt Date: 20150206
  Transmission Date: 20150721
  Serious: Yes (Hospitalization)
  Sender: FDA-Public Use
  Company Number: None

PATIENT
  Age: 74 Year
  Sex: Female

DRUGS (19)
  1. IBANDRONATE [Concomitant]
     Active Substance: IBANDRONATE SODIUM
  2. CALCIUM W/D [Concomitant]
  3. VIT B COMPLEX [Concomitant]
  4. FISH OIL [Concomitant]
     Active Substance: FISH OIL
  5. NARATRIPTAN [Concomitant]
     Active Substance: NARATRIPTAN HYDROCHLORIDE
  6. ASPIRIN. [Concomitant]
     Active Substance: ASPIRIN
  7. METOPROLOL [Concomitant]
     Active Substance: METOPROLOL
  8. VITAMIN E [Concomitant]
     Active Substance: .ALPHA.-TOCOPHEROL
  9. AMPYRA [Suspect]
     Active Substance: DALFAMPRIDINE
     Indication: MULTIPLE SCLEROSIS
     Route: 048
     Dates: start: 201005, end: 201412
  10. PROAIR HFA [Concomitant]
     Active Substance: ALBUTEROL SULFATE
  11. OMEPRAZOLE. [Concomitant]
     Active Substance: OMEPRAZOLE
  12. MORPHINE [Concomitant]
     Active Substance: MORPHINE
  13. MOTRIN [Concomitant]
     Active Substance: IBUPROFEN
  14. MACROBID [Concomitant]
     Active Substance: NITROFURANTOIN\NITROFURANTOIN MONOHYDRATE
  15. OXYBUTYNIN [Concomitant]
     Active Substance: OXYBUTYNIN
  16. IRON [Concomitant]
     Active Substance: IRON
  17. AVONEX [Concomitant]
     Active Substance: INTERFERON BETA-1A
  18. PROZAC [Concomitant]
     Active Substance: FLUOXETINE HYDROCHLORIDE
  19. TIZANIDINE (TIZANIDINE) [Concomitant]
     Active Substance: TIZANIDINE

REACTIONS (15)
  - Sepsis [None]
  - Urinary retention [None]
  - Dizziness [None]
  - Ear pain [None]
  - Nausea [None]
  - Pain in jaw [None]
  - Asthenia [None]
  - Mental status changes [None]
  - Headache [None]
  - Substance use [None]
  - Condition aggravated [None]
  - Hypertension [None]
  - Drug ineffective [None]
  - Urinary tract infection [None]
  - Atrial fibrillation [None]

NARRATIVE: CASE EVENT DATE: 20130227
